FAERS Safety Report 9424548 (Version 1)
Quarter: 2013Q3

REPORT INFORMATION
  Report Type: Report from Study
  Country: GB (occurrence: GB)
  Receive Date: 20130729
  Receipt Date: 20130729
  Transmission Date: 20140515
  Serious: Yes (Hospitalization)
  Sender: FDA-Public Use
  Company Number: GB-ROCHE-1253758

PATIENT
  Age: 74 Year
  Sex: Male

DRUGS (6)
  1. RANIBIZUMAB [Suspect]
     Indication: AGE-RELATED MACULAR DEGENERATION
     Route: 050
     Dates: start: 20090710
  2. RANIBIZUMAB [Suspect]
     Route: 050
     Dates: start: 20130702
  3. CO-AMOXICLAV [Concomitant]
     Route: 065
     Dates: start: 20130213
  4. SALBUTAMOL [Concomitant]
     Route: 055
  5. TIOTROPIUM [Concomitant]
     Route: 055
  6. SERETIDE [Concomitant]
     Route: 055

REACTIONS (2)
  - Pneumonia [Recovered/Resolved]
  - Lung consolidation [Unknown]
